FAERS Safety Report 16218240 (Version 3)
Quarter: 2019Q3

REPORT INFORMATION
  Report Type: Report from Study
  Country: US (occurrence: US)
  Receive Date: 20190419
  Receipt Date: 20190703
  Transmission Date: 20191004
  Serious: Yes (Hospitalization)
  Sender: FDA-Public Use
  Company Number: US-SA-2019SA104073

PATIENT
  Age: 74 Year
  Sex: Female

DRUGS (2)
  1. INSULIN GLARGINE [Suspect]
     Active Substance: INSULIN GLARGINE
     Indication: DIABETES MELLITUS
     Dosage: 60 U, HS
     Route: 058
     Dates: start: 20150615
  2. INSULIN GLARGINE [Suspect]
     Active Substance: INSULIN GLARGINE
     Dosage: 65 U, QD
     Route: 058

REACTIONS (7)
  - Malaise [Unknown]
  - Visual impairment [Not Recovered/Not Resolved]
  - Unevaluable event [Unknown]
  - Throat clearing [Unknown]
  - Cardiac failure congestive [Not Recovered/Not Resolved]
  - Chronic obstructive pulmonary disease [Unknown]
  - Cough [Unknown]

NARRATIVE: CASE EVENT DATE: 20190411
